FAERS Safety Report 5772640-9 (Version None)
Quarter: 2008Q2

REPORT INFORMATION
  Report Type: 
  Country: None (occurrence: None)
  Receive Date: 20080613
  Receipt Date: 20080523
  Transmission Date: 20081010
  Serious: No
  Sender: FDA-Public Use
  Company Number: US-BOEHRINGER INGELHEIM GMBH, GERMANY-2008-BP-08071BP

PATIENT
  Age: 53 Year
  Sex: Female

DRUGS (5)
  1. MIRAPEX [Suspect]
     Indication: RESTLESS LEGS SYNDROME
     Route: 048
     Dates: start: 20080514
  2. DEPAKOTE [Concomitant]
  3. KLONOPIN [Concomitant]
  4. MOTRIN [Concomitant]
  5. TYLENOL W/ CODEINE NO. 3 [Concomitant]

REACTIONS (4)
  - FLUID RETENTION [None]
  - GENERALISED OEDEMA [None]
  - HEADACHE [None]
  - PHARYNGOLARYNGEAL PAIN [None]
